FAERS Safety Report 12459500 (Version 1)
Quarter: 2016Q2

REPORT INFORMATION
  Report Type: Spontaneous
  Country: BR (occurrence: BR)
  Receive Date: 20160613
  Receipt Date: 20160613
  Transmission Date: 20160815
  Serious: Yes (Hospitalization)
  Sender: FDA-Public Use
  Company Number: BR-JNJFOC-20160609684

PATIENT
  Age: 88 Year
  Sex: Male

DRUGS (1)
  1. TRAMAL RETARD [Suspect]
     Active Substance: TRAMADOL
     Indication: PROCEDURAL PAIN
     Route: 048

REACTIONS (1)
  - Hypertensive crisis [Unknown]
